FAERS Safety Report 9717229 (Version 6)
Quarter: 2014Q2

REPORT INFORMATION
  Report Type: Spontaneous
  Country: CN (occurrence: CN)
  Receive Date: 20131127
  Receipt Date: 20140507
  Transmission Date: 20141212
  Serious: Yes (Other)
  Sender: FDA-Public Use
  Company Number: CN-PFIZER INC-2013335093

PATIENT
  Age: 50 Year
  Sex: Female

DRUGS (1)
  1. SUTENT [Suspect]
     Indication: RENAL CELL CARCINOMA
     Dosage: UNK
     Dates: start: 2013

REACTIONS (7)
  - Haemorrhagic ascites [Unknown]
  - Disease progression [Unknown]
  - Renal cell carcinoma [Unknown]
  - Lymphadenopathy [Unknown]
  - Hypertension [Unknown]
  - Asthenia [Unknown]
  - Decreased appetite [Unknown]
